FAERS Safety Report 20290213 (Version 1)
Quarter: 2022Q1

REPORT INFORMATION
  Report Type: Spontaneous
  Country: US (occurrence: US)
  Receive Date: 20220104
  Receipt Date: 20220104
  Transmission Date: 20220423
  Serious: No
  Sender: FDA-Public Use
  Company Number: US-BEH-2021139535

PATIENT
  Sex: Female

DRUGS (1)
  1. HIZENTRA [Suspect]
     Active Substance: HUMAN IMMUNOGLOBULIN G
     Indication: Lung transplant
     Dosage: 3 GRAM, QOW
     Route: 058
     Dates: start: 201501

REACTIONS (3)
  - Pyrexia [Unknown]
  - No adverse event [Unknown]
  - Off label use [Unknown]
